FAERS Safety Report 8902827 (Version 1)
Quarter: 2012Q4

REPORT INFORMATION
  Report Type: 
  Country: RU (occurrence: RU)
  Receive Date: 20121112
  Receipt Date: 20121112
  Transmission Date: 20130627
  Serious: Yes (Death, Other)
  Sender: FDA-Public Use
  Company Number: RU-BRISTOL-MYERS SQUIBB COMPANY-17089129

PATIENT
  Sex: Male

DRUGS (1)
  1. DASATINIB [Suspect]
     Indication: BLAST CELL CRISIS
     Route: 048

REACTIONS (3)
  - Death [Fatal]
  - Renal failure acute [Unknown]
  - Pyrexia [Unknown]
